FAERS Safety Report 5262670-8 (Version None)
Quarter: 2007Q1

REPORT INFORMATION
  Report Type: 
  Country: None (occurrence: None)
  Receive Date: 20070312
  Receipt Date: 20070302
  Transmission Date: 20070707
  Serious: Yes (Other)
  Sender: FDA-Public Use
  Company Number: 2006AP05797

PATIENT
  Age: 544 Month
  Sex: Female
  Weight: 130 kg

DRUGS (4)
  1. SEROQUEL [Suspect]
     Indication: BIPOLAR DISORDER
     Dosage: 600 MG TO 800 MG
     Route: 048
     Dates: start: 20051001, end: 20061201
  2. CITALOPRAM HYDROBROMIDE [Suspect]
     Route: 048
     Dates: start: 20010101
  3. EPILIM [Suspect]
     Route: 048
     Dates: start: 20010101
  4. LITHIUM CARBONATE [Suspect]
     Route: 048
     Dates: start: 20010101

REACTIONS (8)
  - BALANCE DISORDER [None]
  - CONFUSIONAL STATE [None]
  - DIARRHOEA [None]
  - DISORIENTATION [None]
  - HYPERHIDROSIS [None]
  - NEUROTRANSMITTER LEVEL ALTERED [None]
  - PALPITATIONS [None]
  - PANIC DISORDER [None]
